FAERS Safety Report 20379618 (Version 1)
Quarter: 2022Q1

REPORT INFORMATION
  Report Type: Spontaneous
  Country: US (occurrence: US)
  Receive Date: 20220126
  Receipt Date: 20220126
  Transmission Date: 20220423
  Serious: Yes (Life-Threatening, Hospitalization, Other)
  Sender: FDA-Public Use
  Company Number: US-PFIZER INC-202200016773

PATIENT
  Age: 64 Year
  Sex: Male

DRUGS (1)
  1. BOSULIF [Suspect]
     Active Substance: BOSUTINIB MONOHYDRATE
     Dosage: 400 MG, DAILY
     Route: 048
     Dates: start: 20211231

REACTIONS (7)
  - Tachycardia [Not Recovered/Not Resolved]
  - Chest pain [Not Recovered/Not Resolved]
  - Palpitations [Not Recovered/Not Resolved]
  - Pericarditis [Unknown]
  - Oedema [Unknown]
  - Influenza [Unknown]
  - Pyrexia [Unknown]
